FAERS Safety Report 4717919-4 (Version None)
Quarter: 2005Q3

REPORT INFORMATION
  Report Type: 
  Country: None (occurrence: None)
  Receive Date: 20050718
  Receipt Date: 20050523
  Transmission Date: 20060218
  Serious: Yes (Hospitalization, Other)
  Sender: FDA-Public Use
  Company Number: 2004086357

PATIENT
  Age: 73 Year
  Sex: Male

DRUGS (9)
  1. GEODON [Suspect]
     Indication: SCHIZOPHRENIA
     Dosage: 10 (10 MG, 1 IN 1 D), INTRAMUSCULAR
     Route: 030
  2. LISINOPRIL [Concomitant]
  3. DEPAKOTE [Concomitant]
  4. ZETIA [Concomitant]
  5. LIPITOR [Concomitant]
  6. ALTACE [Concomitant]
  7. ASPIRIN [Concomitant]
  8. ARICEPT [Concomitant]
  9. RISPERDAL [Concomitant]

REACTIONS (1)
  - ELECTROCARDIOGRAM QT CORRECTED INTERVAL PROLONGED [None]
